FAERS Safety Report 5654220-9 (Version None)
Quarter: 2008Q1

REPORT INFORMATION
  Report Type: 
  Country: None (occurrence: None)
  Receive Date: 20080304
  Receipt Date: 20080226
  Transmission Date: 20080703
  Serious: Yes (Other)
  Sender: FDA-Public Use
  Company Number: US-WYE-H02819508

PATIENT
  Sex: 0

DRUGS (1)
  1. CENTRUM SILVER (MULTIVITAMIN/MULTIMINERAL, UNSPEC) [Suspect]
     Indication: DRUG USE FOR UNKNOWN INDICATION
     Dosage: ORAL
     Route: 048
     Dates: start: 19930101

REACTIONS (1)
  - BLINDNESS UNILATERAL [None]
